FAERS Safety Report 20388094 (Version 1)
Quarter: 2022Q1

REPORT INFORMATION
  Report Type: Spontaneous
  Country: US (occurrence: US)
  Receive Date: 20220128
  Receipt Date: 20220128
  Transmission Date: 20220423
  Serious: No
  Sender: FDA-Public Use
  Company Number: US-ALVOGEN-2022-ALVOGEN-118162

PATIENT
  Sex: Female

DRUGS (1)
  1. HYDROCODONE BITARTRATE [Suspect]
     Active Substance: HYDROCODONE BITARTRATE
     Indication: Product used for unknown indication

REACTIONS (4)
  - Arthritis [Unknown]
  - Arthralgia [Unknown]
  - Joint swelling [Unknown]
  - Peripheral swelling [Unknown]
